FAERS Safety Report 5534733-0 (Version None)
Quarter: 2007Q4

REPORT INFORMATION
  Report Type: 
  Country: None (occurrence: None)
  Receive Date: 20071120
  Receipt Date: 20070829
  Transmission Date: 20080405
  Serious: No
  Sender: FDA-Public Use
  Company Number: WAES 0708USA05550

PATIENT
  Age: 52 Year
  Sex: Female

DRUGS (7)
  1. JANUVIA [Suspect]
     Indication: TYPE 2 DIABETES MELLITUS
     Dosage: 100 MG/DAILY/PO
     Route: 048
     Dates: start: 20070630
  2. FORTAMET [Concomitant]
  3. IMITREX [Concomitant]
  4. THERAPY UNSPECIFIED [Concomitant]
  5. GLYBURIDE [Concomitant]
  6. POTASSIUM [Concomitant]
  7. VERAPAMIL [Concomitant]

REACTIONS (2)
  - HEADACHE [None]
  - RHINORRHOEA [None]
